FAERS Safety Report 4293350-3 (Version None)
Quarter: 2004Q1

REPORT INFORMATION
  Report Type: 
  Country: None (occurrence: None)
  Receive Date: 20040209
  Receipt Date: 20031106
  Transmission Date: 20041129
  Serious: Yes (Other)
  Sender: FDA-Public Use
  Company Number: RPH 76/03

PATIENT

DRUGS (1)
  1. MDP-BRACCO [Suspect]

REACTIONS (1)
  - UNEVALUABLE EVENT [None]
